FAERS Safety Report 13395968 (Version 1)
Quarter: 2017Q2

REPORT INFORMATION
  Report Type: Spontaneous
  Country: US (occurrence: US)
  Receive Date: 20170403
  Receipt Date: 20170403
  Transmission Date: 20170830
  Serious: Yes (Hospitalization, Other)
  Sender: FDA-Public Use
  Company Number: None

PATIENT
  Age: 46 Year
  Sex: Female
  Weight: 86.85 kg

DRUGS (6)
  1. CARBAMEZEPINE [Suspect]
     Active Substance: CARBAMAZEPINE
     Indication: BIPOLAR DISORDER
     Dosage: ?          QUANTITY:3 CAPSULE(S);?
     Route: 048
     Dates: start: 20170113, end: 20170213
  2. EFFEXOR [Concomitant]
     Active Substance: VENLAFAXINE HYDROCHLORIDE
  3. EVERNATURE MULTIVITAMIN FOR WOMEN [Concomitant]
  4. ASPIRIN. [Concomitant]
     Active Substance: ASPIRIN
  5. ABILIFY [Concomitant]
     Active Substance: ARIPIPRAZOLE
  6. XANAX [Concomitant]
     Active Substance: ALPRAZOLAM

REACTIONS (16)
  - Thirst [None]
  - Chromaturia [None]
  - Constipation [None]
  - Rash [None]
  - Abdominal pain upper [None]
  - Urticaria [None]
  - Pruritus [None]
  - Liver function test increased [None]
  - Malaise [None]
  - Syncope [None]
  - Asthenia [None]
  - Feeling abnormal [None]
  - Fatigue [None]
  - Blood pressure orthostatic abnormal [None]
  - Pain [None]
  - Infection [None]

NARRATIVE: CASE EVENT DATE: 20170214
